FAERS Safety Report 6290988-9 (Version None)
Quarter: 2009Q3

REPORT INFORMATION
  Report Type: 
  Country: None (occurrence: None)
  Receive Date: 20090730
  Receipt Date: 20090719
  Transmission Date: 20100115
  Serious: Yes (Life-Threatening, Other)
  Sender: FDA-Public Use
  Company Number: CN-PFIZER INC-2009244059

PATIENT
  Age: 60 Year

DRUGS (1)
  1. VFEND [Suspect]
     Indication: FUNGAL INFECTION
     Dosage: 200MG, 2X/DAY
     Route: 042
     Dates: start: 20090716, end: 20090718

REACTIONS (2)
  - HYPERHIDROSIS [None]
  - SHOCK [None]
